FAERS Safety Report 8508002-0 (Version None)
Quarter: 2012Q3

REPORT INFORMATION
  Report Type: 
  Country: None (occurrence: None)
  Receive Date: 20120713
  Receipt Date: 20120710
  Transmission Date: 20120928
  Serious: Yes (Hospitalization)
  Sender: FDA-Public Use
  Company Number: US-PURDUE-USA-2012-0089426

PATIENT
  Age: 54 Year
  Sex: Female
  Weight: 55.782 kg

DRUGS (13)
  1. VITAMIN D [Concomitant]
     Indication: ROUTINE HEALTH MAINTENANCE
     Dosage: UNK
     Dates: start: 19880101
  2. MOTRIN [Suspect]
     Indication: PAIN
     Dosage: 800 MG, BID
     Route: 048
     Dates: start: 20111219, end: 20120612
  3. THERAGRAN-M                        /00610701/ [Concomitant]
     Indication: ROUTINE HEALTH MAINTENANCE
     Dosage: UNK
     Dates: start: 19880101
  4. B12                                /00056201/ [Concomitant]
     Indication: ROUTINE HEALTH MAINTENANCE
     Dosage: UNK
     Dates: start: 19880101
  5. ZOFRAN [Suspect]
     Indication: NAUSEA
     Dosage: 4 MG, Q6H
     Dates: start: 20120617, end: 20120619
  6. MS CONTIN [Suspect]
     Indication: PAIN
     Dosage: 15 MG, BID
     Route: 048
     Dates: start: 20120612, end: 20120612
  7. ALEVE [Suspect]
     Indication: PAIN
     Dosage: 220 MG, BID
     Route: 048
     Dates: start: 20120612, end: 20120613
  8. VITAMIN C                          /00008001/ [Concomitant]
     Indication: ROUTINE HEALTH MAINTENANCE
     Dosage: UNK
     Dates: start: 19880101
  9. STUDY DRUG [Suspect]
     Indication: NON-SMALL CELL LUNG CANCER
     Dosage: 45 MG, UNK
     Dates: start: 20120529, end: 20120618
  10. VITAMIN E                          /00110501/ [Concomitant]
     Indication: ROUTINE HEALTH MAINTENANCE
     Dosage: UNK
     Dates: start: 19880101
  11. DOXYCYCLINE [Suspect]
     Indication: NON-SMALL CELL LUNG CANCER
     Dosage: 100 MG, BID
     Route: 048
     Dates: start: 20120529, end: 20120620
  12. PAMIDRONATE DISODIUM [Concomitant]
     Indication: METASTASES TO BONE
     Dosage: UNK
     Dates: start: 20110225
  13. FOLIC ACID [Concomitant]
     Indication: CHEMOTHERAPY CYTOKINE PROPHYLAXIS
     Dosage: UNK
     Dates: start: 20111201

REACTIONS (6)
  - BLOOD CREATINE INCREASED [None]
  - VOMITING [None]
  - RENAL FAILURE ACUTE [None]
  - DEHYDRATION [None]
  - DIARRHOEA [None]
  - NAUSEA [None]
